FAERS Safety Report 7782688-0 (Version None)
Quarter: 2011Q3

REPORT INFORMATION
  Report Type: 
  Country: None (occurrence: None)
  Receive Date: 20110928
  Receipt Date: 20110922
  Transmission Date: 20111222
  Serious: Yes (Other)
  Sender: FDA-Public Use
  Company Number: PHHY2011CA84129

PATIENT
  Sex: Female

DRUGS (1)
  1. ZOLEDRONOC ACID [Suspect]
     Indication: OSTEOPOROSIS
     Dosage: 5 MG, UNK
     Route: 042
     Dates: start: 20110919

REACTIONS (17)
  - HYPOPHAGIA [None]
  - DYSSTASIA [None]
  - MYALGIA [None]
  - PYREXIA [None]
  - HEADACHE [None]
  - CHILLS [None]
  - PAIN [None]
  - MALAISE [None]
  - MIGRAINE [None]
  - FATIGUE [None]
  - TREMOR [None]
  - ASTHENIA [None]
  - FEELING ABNORMAL [None]
  - ABDOMINAL DISCOMFORT [None]
  - INSOMNIA [None]
  - SOMNOLENCE [None]
  - DIZZINESS [None]
